FAERS Safety Report 6159501-0 (Version None)
Quarter: 2009Q2

REPORT INFORMATION
  Report Type: 
  Country: None (occurrence: None)
  Receive Date: 20090420
  Receipt Date: 20090406
  Transmission Date: 20091009
  Serious: No
  Sender: FDA-Public Use
  Company Number: US-ABBOTT-09P-163-0566731-00

PATIENT
  Sex: Female

DRUGS (1)
  1. LUPRON DEPOT-PED [Suspect]
     Indication: PRECOCIOUS PUBERTY
     Route: 030
     Dates: start: 20070529

REACTIONS (2)
  - INJECTION SITE HAEMATOMA [None]
  - INJECTION SITE PAIN [None]
